FAERS Safety Report 10413731 (Version 3)
Quarter: 2014Q3

REPORT INFORMATION
  Report Type: Spontaneous
  Country: JP (occurrence: JP)
  Receive Date: 20140827
  Receipt Date: 20140919
  Transmission Date: 20150326
  Serious: Yes (Life-Threatening, Other)
  Sender: FDA-Public Use
  Company Number: JP-TAKEDA-2014JNJ004786

PATIENT

DRUGS (10)
  1. KYTRIL [Concomitant]
     Active Substance: GRANISETRON HYDROCHLORIDE
     Dosage: 2 MG, QD
     Route: 048
     Dates: start: 20140704, end: 20140725
  2. URINORM [Concomitant]
     Active Substance: BENZBROMARONE
     Indication: HYPERURICAEMIA
     Dosage: 25 MG, UNK
     Route: 048
     Dates: end: 20140727
  3. NORVASC [Concomitant]
     Active Substance: AMLODIPINE BESYLATE
     Indication: HYPERTENSION
     Dosage: 5 MG, QD
     Route: 048
     Dates: end: 20140727
  4. LOXOPROFEN [Concomitant]
     Active Substance: LOXOPROFEN
     Indication: ARTHRITIS
     Dosage: 60 MG, UNK
     Route: 048
     Dates: start: 20140605, end: 20140727
  5. REBAMIPIDE [Concomitant]
     Active Substance: REBAMIPIDE
     Indication: ARTHRITIS
     Dosage: 100 MG, QD
     Route: 048
     Dates: start: 20140605, end: 20140727
  6. NEXIUM [Concomitant]
     Active Substance: ESOMEPRAZOLE MAGNESIUM
     Dosage: 20 MG, QD
     Route: 048
     Dates: start: 20140605, end: 20140727
  7. ALKERAN [Concomitant]
     Active Substance: MELPHALAN
     Indication: PLASMA CELL MYELOMA
     Dosage: 10 MG, UNK
     Route: 048
     Dates: start: 20140704, end: 20140707
  8. PREDONINE [Concomitant]
     Active Substance: PREDNISOLONE\PREDNISOLONE ACETATE\PREDNISOLONE SODIUM SUCCINATE
     Indication: PLASMA CELL MYELOMA
     Dosage: 65 MG, QD
     Route: 048
     Dates: start: 20140704, end: 20140707
  9. VELCADE [Suspect]
     Active Substance: BORTEZOMIB
     Indication: PLASMA CELL MYELOMA
     Dosage: 2.1 MG, UNK
     Route: 058
     Dates: start: 20140704, end: 20140725
  10. ZOMETA [Concomitant]
     Active Substance: ZOLEDRONIC ACID
     Dosage: 4 MG, QD
     Route: 041
     Dates: start: 20140726, end: 20140726

REACTIONS (3)
  - Ileus [Not Recovered/Not Resolved]
  - Septic shock [Recovering/Resolving]
  - Amyloidosis [Unknown]

NARRATIVE: CASE EVENT DATE: 20140727
